FAERS Safety Report 4456270-7 (Version None)
Quarter: 2004Q3

REPORT INFORMATION
  Report Type: 
  Country: None (occurrence: None)
  Receive Date: 20040920
  Receipt Date: 20040902
  Transmission Date: 20050211
  Serious: Yes (Death, Hospitalization)
  Sender: FDA-Public Use
  Company Number: 184612

PATIENT
  Age: 4 Year
  Sex: Female
  Weight: 18 kg

DRUGS (25)
  1. AVONEX [Suspect]
     Indication: MULTIPLE SCLEROSIS
     Dosage: 0.35 CC BIW IM
     Route: 030
     Dates: start: 20011001, end: 20030801
  2. AVONEX [Suspect]
     Indication: MULTIPLE SCLEROSIS
     Dosage: 0.3 CC BIW IM
     Route: 030
     Dates: start: 20030826, end: 20030929
  3. AVONEX [Suspect]
     Indication: MULTIPLE SCLEROSIS
     Dosage: 0.15 CC BIW IM
     Route: 030
     Dates: start: 20031013, end: 20031024
  4. AVONEX [Suspect]
     Indication: MULTIPLE SCLEROSIS
     Dosage: 7.5 MCG BIW IM
     Route: 030
     Dates: start: 20040401, end: 20040417
  5. NATALIZUMAB [Concomitant]
  6. LACTULOSE [Concomitant]
  7. MULTI-VITAMINS [Concomitant]
  8. BACLOFEN [Concomitant]
  9. CARBATROL [Concomitant]
  10. SENOKOT [Concomitant]
  11. SEPTRA [Concomitant]
  12. NEURONTIN [Concomitant]
  13. OXYCODONE HCL [Concomitant]
  14. DEPAKOTE [Concomitant]
  15. ZANTAC [Concomitant]
  16. MIRALAX [Concomitant]
  17. TEGRETOL [Concomitant]
  18. DILANTIN [Concomitant]
  19. CALCIUM CARBONATE [Concomitant]
  20. BACTRIM [Concomitant]
  21. ACETAZOLAMIDE [Concomitant]
  22. COLACE [Concomitant]
  23. PHENERGAN   SPECIA [Concomitant]
  24. DURAGESIC [Concomitant]
  25. MORPHINE SULFATE [Concomitant]

REACTIONS (32)
  - ALANINE AMINOTRANSFERASE INCREASED [None]
  - ANTICONVULSANT DRUG LEVEL INCREASED [None]
  - ASPARTATE AMINOTRANSFERASE INCREASED [None]
  - ASTHENIA [None]
  - BILIRUBIN CONJUGATED INCREASED [None]
  - BLOOD ALKALINE PHOSPHATASE INCREASED [None]
  - BLOOD BILIRUBIN INCREASED [None]
  - BLOOD CREATINE PHOSPHOKINASE INCREASED [None]
  - BLOOD PRESSURE DECREASED [None]
  - BODY TEMPERATURE DECREASED [None]
  - BRADYCARDIA [None]
  - CONDITION AGGRAVATED [None]
  - DEHYDRATION [None]
  - DIZZINESS [None]
  - ELECTROENCEPHALOGRAM ABNORMAL [None]
  - GAMMA-GLUTAMYLTRANSFERASE INCREASED [None]
  - HEPATIC ENZYME INCREASED [None]
  - JOINT RANGE OF MOTION DECREASED [None]
  - MEDICATION ERROR [None]
  - MULTIPLE SCLEROSIS [None]
  - NAUSEA [None]
  - NUCLEAR MAGNETIC RESONANCE IMAGING BRAIN ABNORMAL [None]
  - ORAL PAIN [None]
  - PAIN IN EXTREMITY [None]
  - PARALYSIS [None]
  - PROTHROMBIN TIME PROLONGED [None]
  - RESPIRATORY RATE DECREASED [None]
  - RHINORRHOEA [None]
  - THIRST [None]
  - URINARY TRACT INFECTION [None]
  - VISUAL ACUITY REDUCED [None]
  - VOMITING [None]
